FAERS Safety Report 9254688 (Version 1)
Quarter: 2013Q2

REPORT INFORMATION
  Report Type: Spontaneous
  Country: US (occurrence: None)
  Receive Date: 20130422
  Receipt Date: 20130422
  Transmission Date: 20140414
  Serious: Yes (Other)
  Sender: FDA-Public Use
  Company Number: None

PATIENT
  Age: 46 Year
  Sex: Male
  Weight: 61.24 kg

DRUGS (5)
  1. BUPRENORPHINE HYDROCHLORIDE [Suspect]
     Dosage: 5 TIMES A DAY  PO
     Route: 048
     Dates: start: 20130314, end: 20130418
  2. CLONAZEPAM [Concomitant]
  3. IBUPROFEN [Concomitant]
  4. SIMVASTATIN [Concomitant]
  5. DOXYCYCLINE [Concomitant]

REACTIONS (6)
  - Dizziness [None]
  - Insomnia [None]
  - Feeling jittery [None]
  - Headache [None]
  - Nausea [None]
  - Product substitution issue [None]
